FAERS Safety Report 5084223-7 (Version None)
Quarter: 2006Q3

REPORT INFORMATION
  Report Type: 
  Country: None (occurrence: None)
  Receive Date: 20060821
  Receipt Date: 20060120
  Transmission Date: 20061208
  Serious: No
  Sender: FDA-Public Use
  Company Number: US-BRISTOL-MYERS SQUIBB COMPANY-13255500

PATIENT
  Age: 46 Year
  Sex: Male
  Weight: 90 kg

DRUGS (1)
  1. TEQUIN [Suspect]
     Indication: BRONCHITIS ACUTE
     Route: 048
     Dates: start: 20060116, end: 20060117

REACTIONS (2)
  - SKIN LESION [None]
  - TINNITUS [None]
